FAERS Safety Report 14414392 (Version 2)
Quarter: 2018Q1

REPORT INFORMATION
  Report Type: Spontaneous
  Country: US (occurrence: US)
  Receive Date: 20180120
  Receipt Date: 20180228
  Transmission Date: 20180509
  Serious: Yes (Death)
  Sender: FDA-Public Use
  Company Number: US-ROCHE-2059448

PATIENT
  Age: 59 Year
  Sex: Male

DRUGS (1)
  1. RITUXAN [Suspect]
     Active Substance: RITUXIMAB
     Indication: NON-HODGKIN^S LYMPHOMA
     Dosage: FORM STRENGTH: 10 MG/ML
     Route: 042
     Dates: start: 20170211, end: 20171110

REACTIONS (1)
  - Death [Fatal]

NARRATIVE: CASE EVENT DATE: 20171110
